FAERS Safety Report 4494713-3 (Version None)
Quarter: 2004Q4

REPORT INFORMATION
  Report Type: 
  Country: None (occurrence: None)
  Receive Date: 20041103
  Receipt Date: 20041018
  Transmission Date: 20050328
  Serious: Yes (Death)
  Sender: FDA-Public Use
  Company Number: 2004-BP-10180RO

PATIENT
  Age: 17 Year

DRUGS (2)
  1. METHADONE HCL [Suspect]
  2. ETHANOL (ETHANOL) [Suspect]

REACTIONS (3)
  - CARDIO-RESPIRATORY ARREST [None]
  - DRUG ABUSER [None]
  - MULTIPLE DRUG OVERDOSE INTENTIONAL [None]
